FAERS Safety Report 4891025-0 (Version None)
Quarter: 2006Q1

REPORT INFORMATION
  Report Type: 
  Country: None (occurrence: None)
  Receive Date: 20060125
  Receipt Date: 20060112
  Transmission Date: 20060701
  Serious: Yes (Life-Threatening, Hospitalization)
  Sender: FDA-Public Use
  Company Number: NO-GLAXOSMITHKLINE-B0406239A

PATIENT
  Age: 39 Year
  Sex: Male

DRUGS (1)
  1. PANODIL ZAPP [Suspect]
     Indication: PAIN
     Dosage: 500MG SINGLE DOSE
     Route: 048
     Dates: start: 20051220, end: 20051220

REACTIONS (1)
  - ANAPHYLACTIC SHOCK [None]
